FAERS Safety Report 7210109-5 (Version None)
Quarter: 2011Q1

REPORT INFORMATION
  Report Type: 
  Country: None (occurrence: None)
  Receive Date: 20110105
  Receipt Date: 20101229
  Transmission Date: 20110831
  Serious: Yes (Hospitalization)
  Sender: FDA-Public Use
  Company Number: JP-MERCK-1007USA00096

PATIENT
  Age: 65 Year
  Sex: Female
  Weight: 66 kg

DRUGS (8)
  1. ACTOS [Concomitant]
     Indication: DIABETES MELLITUS
     Route: 048
     Dates: start: 20090402, end: 20100624
  2. LIPITOR [Concomitant]
     Indication: HYPERCHOLESTEROLAEMIA
     Route: 048
     Dates: start: 20081010, end: 20100624
  3. JANUVIA [Suspect]
     Indication: DIABETES MELLITUS
     Route: 048
     Dates: start: 20100330, end: 20100624
  4. OLMETEC [Concomitant]
     Indication: HYPERTENSION
     Route: 048
     Dates: start: 20081120, end: 20100617
  5. ALMATOL [Concomitant]
     Indication: HYPERTENSION
     Route: 048
     Dates: start: 20081120, end: 20100624
  6. NORVASC [Concomitant]
     Indication: HYPERTENSION
     Route: 048
     Dates: start: 20081120, end: 20100617
  7. CONSTAN [Concomitant]
     Indication: DEPRESSION
     Route: 048
     Dates: start: 20081120
  8. AMOXAN [Concomitant]
     Indication: DEPRESSION
     Route: 048
     Dates: start: 20081120

REACTIONS (1)
  - CARDIOGENIC SHOCK [None]
